FAERS Safety Report 6199498-0 (Version None)
Quarter: 2009Q2

REPORT INFORMATION
  Report Type: 
  Country: None (occurrence: None)
  Receive Date: 20090522
  Receipt Date: 20090512
  Transmission Date: 20091009
  Serious: Yes (Death, Hospitalization)
  Sender: FDA-Public Use
  Company Number: SE-JNJFOC-20090502673

PATIENT
  Age: 57 Year
  Sex: Male

DRUGS (3)
  1. REMICADE [Suspect]
     Route: 042
  2. REMICADE [Suspect]
     Indication: RHEUMATOID ARTHRITIS
     Route: 042
  3. METHOTREXATE [Concomitant]

REACTIONS (12)
  - BLADDER CANCER [None]
  - BRAIN STEM ISCHAEMIA [None]
  - CARDIAC ARREST [None]
  - CARDIAC HYPERTROPHY [None]
  - CORONARY ARTERY STENOSIS [None]
  - FIBRIN D DIMER INCREASED [None]
  - MYOCARDIAL INFARCTION [None]
  - NASOPHARYNGITIS [None]
  - OBESITY [None]
  - OXYGEN SATURATION DECREASED [None]
  - RHEUMATOID ARTHRITIS [None]
  - TYPE 2 DIABETES MELLITUS [None]
